FAERS Safety Report 19744508 (Version 1)
Quarter: 2021Q3

REPORT INFORMATION
  Report Type: Spontaneous
  Country: US (occurrence: US)
  Receive Date: 20210823
  Receipt Date: 20210823
  Transmission Date: 20211014
  Serious: No
  Sender: FDA-Public Use
  Company Number: None

PATIENT
  Age: 64 Year
  Sex: Female

DRUGS (2)
  1. TEMOZOLOMIDE 20MG AMNEAL PHARMACEUTICALS [Suspect]
     Active Substance: TEMOZOLOMIDE
     Indication: BRAIN NEOPLASM MALIGNANT
     Dosage: 1 CAPSULE OF 140 MG ALONG WITH TWO 100 MG CAPSULES BY MOUTH NIGHTLY FOR 5 DAYS OF A 28 DAY CYCLE. (DAILY DOSE OF 340 MG)
     Route: 048
     Dates: start: 202105
  2. TEMOZOLOMIDE 100MG AMNEAL PHARMACEUTICALS [Suspect]
     Active Substance: TEMOZOLOMIDE
     Indication: BRAIN NEOPLASM MALIGNANT
     Dosage: 1 CAPSULE OF 140 MG ALONG WITH TWO 100 MG CAPSULES BY MOUTH NIGHTLY FOR 5 DAYS OF A 28 DAY CYCLE. (DAILY DOSE OF 340 MG)?
     Route: 048
     Dates: start: 202105

REACTIONS (2)
  - Pulmonary embolism [None]
  - Asthenia [None]

NARRATIVE: CASE EVENT DATE: 202105
